FAERS Safety Report 5201889-9 (Version None)
Quarter: 2006Q4

REPORT INFORMATION
  Report Type: 
  Country: None (occurrence: None)
  Receive Date: 20061010
  Receipt Date: 20050919
  Transmission Date: 20070319
  Serious: Yes (Other)
  Sender: FDA-Public Use
  Company Number: 2005-09-1372

PATIENT
  Age: 21 Year
  Sex: Male
  Weight: 75.7507 kg

DRUGS (2)
  1. TEMODAR [Suspect]
     Indication: BRAIN NEOPLASM
     Dosage: 380 MG QD ORAL
     Route: 048
     Dates: start: 20050819, end: 20050823
  2. ZOFRAN [Concomitant]

REACTIONS (1)
  - THROMBOCYTOPENIA [None]
